FAERS Safety Report 4741959-2 (Version None)
Quarter: 2005Q3

REPORT INFORMATION
  Report Type: 
  Country: None (occurrence: None)
  Receive Date: 20050801
  Receipt Date: 20050614
  Transmission Date: 20060218
  Serious: No
  Sender: FDA-Public Use
  Company Number: 2005PV000038

PATIENT
  Age: 38 Year
  Sex: Female
  Weight: 97.0698 kg

DRUGS (5)
  1. BYETTA [Suspect]
     Indication: DIABETES MELLITUS NON-INSULIN-DEPENDENT
     Dosage: 5 UG;BID;SC
     Route: 058
  2. YASMIN [Concomitant]
  3. SPIRONOLACTONE [Concomitant]
  4. ENALAPRIL [Concomitant]
  5. ADVIL [Concomitant]

REACTIONS (3)
  - DECREASED APPETITE [None]
  - DYSPEPSIA [None]
  - HYPERHIDROSIS [None]
